FAERS Safety Report 12872730 (Version 1)
Quarter: 2016Q4

REPORT INFORMATION
  Report Type: Spontaneous
  Country: US (occurrence: US)
  Receive Date: 20161021
  Receipt Date: 20161021
  Transmission Date: 20170207
  Serious: Yes (Hospitalization, Other)
  Sender: FDA-Public Use
  Company Number: US-INDIVIOR LIMITED-INDV-095772-2016

PATIENT
  Age: 50 Year
  Sex: Male

DRUGS (1)
  1. SUBOXONE [Suspect]
     Active Substance: BUPRENORPHINE HYDROCHLORIDE\NALOXONE HYDROCHLORIDE
     Indication: DRUG DEPENDENCE
     Dosage: 1.5 MG TWICE DAILY
     Route: 060
     Dates: start: 201510

REACTIONS (5)
  - Rotator cuff syndrome [Not Recovered/Not Resolved]
  - Injury [Recovered/Resolved]
  - Tendon rupture [Recovered/Resolved]
  - Product preparation error [Not Recovered/Not Resolved]
  - Product use issue [Not Recovered/Not Resolved]

NARRATIVE: CASE EVENT DATE: 201510
